FAERS Safety Report 8167833-X (Version None)
Quarter: 2012Q1

REPORT INFORMATION
  Report Type: 
  Country: None (occurrence: None)
  Receive Date: 20120227
  Receipt Date: 20120220
  Transmission Date: 20120608
  Serious: Yes (Hospitalization)
  Sender: FDA-Public Use
  Company Number: GB-ROCHE-632059

PATIENT
  Sex: Male
  Weight: 73 kg

DRUGS (4)
  1. AMLODIPINE [Concomitant]
     Indication: HYPERTENSION
     Route: 048
  2. AVASTIN [Suspect]
     Indication: COLON CANCER
     Dosage: DOSE: 1500 MG BD. TEMPORARILY INTERRUPTED. LAST DOSE: 15 APRIL 2009. CURRENT CYCLE NUMBER 7.
     Route: 042
  3. OMEPRAZOLE [Concomitant]
     Route: 048
  4. XELODA [Suspect]
     Indication: COLON CANCER
     Dosage: TEMPORARILY INTERRUPTED. LAST DOSE: 29 APRIL 2009.CURRENT CYCLE NUMBER 7.
     Route: 048

REACTIONS (2)
  - INFECTION [None]
  - CALCULUS URETERIC [None]
